FAERS Safety Report 21353643 (Version 1)
Quarter: 2022Q3

REPORT INFORMATION
  Report Type: Spontaneous
  Country: US (occurrence: US)
  Receive Date: 20220920
  Receipt Date: 20220920
  Transmission Date: 20221027
  Serious: Yes (Death, Life-Threatening, Other)
  Sender: FDA-Public Use
  Company Number: US-drreddys-LIT/USA/22/0154693

PATIENT
  Sex: Female

DRUGS (22)
  1. DECITABINE [Suspect]
     Active Substance: DECITABINE
     Indication: Hepatoblastoma
  2. DECITABINE [Suspect]
     Active Substance: DECITABINE
     Indication: Metastases to lung
  3. DOXORUBICIN HYDROCHLORIDE [Suspect]
     Active Substance: DOXORUBICIN HYDROCHLORIDE
     Indication: Hepatoblastoma
  4. DOXORUBICIN HYDROCHLORIDE [Suspect]
     Active Substance: DOXORUBICIN HYDROCHLORIDE
     Indication: Metastases to lung
  5. MELPHALAN HYDROCHLORIDE [Suspect]
     Active Substance: MELPHALAN HYDROCHLORIDE
     Indication: Hepatoblastoma
  6. MELPHALAN HYDROCHLORIDE [Suspect]
     Active Substance: MELPHALAN HYDROCHLORIDE
     Indication: Metastases to lung
  7. TACROLIMUS [Suspect]
     Active Substance: TACROLIMUS
     Indication: Hepatoblastoma
  8. TACROLIMUS [Suspect]
     Active Substance: TACROLIMUS
     Indication: Metastases to lung
  9. HYDROXYUREA [Suspect]
     Active Substance: HYDROXYUREA
     Indication: Hepatoblastoma
  10. HYDROXYUREA [Suspect]
     Active Substance: HYDROXYUREA
     Indication: Metastases to lung
  11. MERCAPTOPURINE [Suspect]
     Active Substance: MERCAPTOPURINE
     Indication: Hepatoblastoma
  12. MERCAPTOPURINE [Suspect]
     Active Substance: MERCAPTOPURINE
     Indication: Metastases to lung
  13. CYTARABINE [Suspect]
     Active Substance: CYTARABINE
     Indication: Hepatoblastoma
     Dosage: TWO COURSES OF LOW-DOSE CYTARABINE 40 MG/M2/DOSE
  14. CYTARABINE [Suspect]
     Active Substance: CYTARABINE
     Indication: Metastases to lung
     Dosage: HIGH-DOSE CYTARABINE
  15. FLUDARABINE [Suspect]
     Active Substance: FLUDARABINE PHOSPHATE
     Indication: Hepatoblastoma
  16. FLUDARABINE [Suspect]
     Active Substance: FLUDARABINE PHOSPHATE
     Indication: Metastases to lung
     Dosage: UMBILICAL CORD BLOOD TRANSPLANT PREPARATIVE REGIMEN
  17. BUSULFAN [Suspect]
     Active Substance: BUSULFAN
     Indication: Hepatoblastoma
  18. BUSULFAN [Suspect]
     Active Substance: BUSULFAN
     Indication: Metastases to lung
  19. LAPINE T-LYMPHOCYTE IMMUNE GLOBULIN [Suspect]
     Active Substance: LAPINE T-LYMPHOCYTE IMMUNE GLOBULIN
     Indication: Hepatoblastoma
  20. LAPINE T-LYMPHOCYTE IMMUNE GLOBULIN [Suspect]
     Active Substance: LAPINE T-LYMPHOCYTE IMMUNE GLOBULIN
     Indication: Metastases to lung
  21. MYCOPHENOLATE MOFETIL [Suspect]
     Active Substance: MYCOPHENOLATE MOFETIL
     Indication: Hepatoblastoma
  22. MYCOPHENOLATE MOFETIL [Suspect]
     Active Substance: MYCOPHENOLATE MOFETIL
     Indication: Metastases to lung

REACTIONS (8)
  - Cardiac arrest [Fatal]
  - Cardiogenic shock [Unknown]
  - Drug ineffective for unapproved indication [Unknown]
  - Therapy non-responder [Unknown]
  - Haemorrhage [Unknown]
  - Metastases to lung [Unknown]
  - Hepatoblastoma [Unknown]
  - Condition aggravated [Unknown]
